FAERS Safety Report 6248323-8 (Version None)
Quarter: 2009Q2

REPORT INFORMATION
  Report Type: 
  Country: None (occurrence: None)
  Receive Date: 20090629
  Receipt Date: 20090617
  Transmission Date: 20091009
  Serious: Yes (Hospitalization)
  Sender: FDA-Public Use
  Company Number: PHHY2009MX24336

PATIENT
  Sex: Female

DRUGS (1)
  1. STALEVO 100 [Suspect]
     Indication: PARKINSON'S DISEASE
     Dosage: 5 TABLET (100/25/200 MG) DAILY
     Route: 048
     Dates: start: 20060801

REACTIONS (6)
  - DIARRHOEA [None]
  - DYSKINESIA [None]
  - MEDICAL DEVICE IMPLANTATION [None]
  - MUSCLE SPASMS [None]
  - TREMOR [None]
  - VOMITING [None]
